FAERS Safety Report 14048122 (Version 2)
Quarter: 2017Q4

REPORT INFORMATION
  Report Type: Spontaneous
  Country: AU (occurrence: AU)
  Receive Date: 20171005
  Receipt Date: 20171011
  Transmission Date: 20180321
  Serious: Yes (Other)
  Sender: FDA-Public Use
  Company Number: AU-SA-2017SA178096

PATIENT
  Age: 72 Year
  Sex: Male

DRUGS (3)
  1. CLOPIDOGREL BISULFATE. [Suspect]
     Active Substance: CLOPIDOGREL BISULFATE
     Route: 048
  2. RAMIPRIL SANDOZ [Suspect]
     Active Substance: RAMIPRIL
     Route: 048
  3. METOPROLOL SANDOZ [Suspect]
     Active Substance: METOPROLOL
     Route: 065

REACTIONS (10)
  - Diarrhoea [Unknown]
  - Gastrointestinal sounds abnormal [Unknown]
  - Influenza [Unknown]
  - Ocular icterus [Unknown]
  - Abdominal discomfort [Unknown]
  - Gastric dilatation [Unknown]
  - Weight increased [Unknown]
  - Abdominal tenderness [Unknown]
  - Yellow skin [Unknown]
  - Abdominal distension [Unknown]

NARRATIVE: CASE EVENT DATE: 20170215
